FAERS Safety Report 5160047-7 (Version None)
Quarter: 2006Q4

REPORT INFORMATION
  Report Type: 
  Country: None (occurrence: None)
  Receive Date: 20061129
  Receipt Date: 20060808
  Transmission Date: 20070319
  Serious: No
  Sender: FDA-Public Use
  Company Number: US-GLAXOSMITHKLINE-A0615803A

PATIENT
  Age: 69 Year
  Sex: Female

DRUGS (4)
  1. BUPROPION HYDROCHLORIDE [Suspect]
     Dosage: 150MG TWICE PER DAY
     Route: 048
     Dates: start: 20050101
  2. LISINOPRIL [Concomitant]
  3. LIPITOR [Concomitant]
  4. TAMOXIFEN CITRATE [Concomitant]

REACTIONS (1)
  - DRUG INEFFECTIVE [None]
